FAERS Safety Report 24642253 (Version 2)
Quarter: 2024Q4

REPORT INFORMATION
  Report Type: Spontaneous
  Country: CA (occurrence: CA)
  Receive Date: 20241120
  Receipt Date: 20241219
  Transmission Date: 20250115
  Serious: Yes (Hospitalization)
  Sender: INSUD PHARMA
  Company Number: CA-DUCHESNAY-2024CA000451

PATIENT
  Age: 49 Year
  Sex: Female

DRUGS (5)
  1. DROSPIRENONE [Suspect]
     Active Substance: DROSPIRENONE
     Indication: Oral contraception
     Dosage: DOSE: 4 MG; FREQUENCY: 1 EVERY 1 DAYS
     Route: 048
     Dates: start: 20240524, end: 20240601
  2. FOLIC ACID [Concomitant]
     Active Substance: FOLIC ACID
     Indication: Product used for unknown indication
     Dosage: 400 MICROGRAM
     Route: 065
  3. LUTEIN [Concomitant]
     Active Substance: LUTEIN
     Indication: Product used for unknown indication
     Dosage: 250 MICROGRAM, QD
     Route: 048
  4. MULTIVITAMINS WITH MINERALS [UMBRELLA TERM] [Concomitant]
     Indication: Product used for unknown indication
     Route: 065
  5. FERROUS SULFATE [Concomitant]
     Active Substance: FERROUS SULFATE
     Indication: Product used for unknown indication
     Dosage: 10 MILLIGRAM
     Route: 065

REACTIONS (3)
  - Cerebral venous sinus thrombosis [Recovered/Resolved]
  - Headache [Recovered/Resolved]
  - Nausea [Recovered/Resolved]

NARRATIVE: CASE EVENT DATE: 20240531
